FAERS Safety Report 8370683-2 (Version None)
Quarter: 2012Q2

REPORT INFORMATION
  Report Type: 
  Country: None (occurrence: None)
  Receive Date: 20120518
  Receipt Date: 20120512
  Transmission Date: 20120825
  Serious: Yes (Hospitalization)
  Sender: FDA-Public Use
  Company Number: US-BAYER-2011-033373

PATIENT
  Age: 44 Year
  Sex: Female
  Weight: 68.027 kg

DRUGS (8)
  1. YAZ [Suspect]
     Indication: CONTRACEPTION
     Dosage: UNK
     Dates: start: 20081101, end: 20090701
  2. YAZ [Suspect]
     Indication: PREMENSTRUAL SYNDROME
  3. ZYRTEC [Concomitant]
     Indication: RHINITIS ALLERGIC
     Dosage: 10 MG, UNK
  4. MUCINEX [Concomitant]
     Dosage: UNK
     Dates: start: 20090625
  5. AUGMENTIN [Concomitant]
     Dosage: 875-125MG
     Route: 048
     Dates: start: 20090625
  6. NASONEX [Concomitant]
     Indication: RHINITIS ALLERGIC
     Dosage: 0.05 MG, UNK
     Route: 055
     Dates: start: 20090602
  7. IRON [Concomitant]
     Dosage: UNK UNK, QD
     Dates: start: 20090602
  8. IBUPROFEN [Concomitant]
     Dosage: 200-30MG
     Route: 048

REACTIONS (7)
  - TRANSVERSE SINUS THROMBOSIS [None]
  - INTRACRANIAL VENOUS SINUS THROMBOSIS [None]
  - PAIN [None]
  - INJURY [None]
  - JUGULAR VEIN THROMBOSIS [None]
  - THROMBOSIS [None]
  - SUPERIOR SAGITTAL SINUS THROMBOSIS [None]
